FAERS Safety Report 9656720 (Version 2)
Quarter: 2014Q3

REPORT INFORMATION
  Report Type: Spontaneous
  Country: US (occurrence: US)
  Receive Date: 20131030
  Receipt Date: 20140819
  Transmission Date: 20150326
  Serious: Yes (Hospitalization, Other)
  Sender: FDA-Public Use
  Company Number: US-009507513-1310USA012779

PATIENT
  Sex: Female
  Weight: 103.4 kg

DRUGS (1)
  1. NUVARING [Suspect]
     Active Substance: ETHINYL ESTRADIOL\ETONOGESTREL
     Indication: CONTRACEPTION
     Dosage: ONE IN ON 25TH, OUT ON 20TH
     Route: 067
     Dates: start: 201004, end: 20100610

REACTIONS (6)
  - Pulmonary infarction [Unknown]
  - Contusion [Recovering/Resolving]
  - Pulmonary embolism [Unknown]
  - Pleural effusion [Unknown]
  - Female sterilisation [Unknown]
  - Abnormal withdrawal bleeding [Unknown]

NARRATIVE: CASE EVENT DATE: 201004
